FAERS Safety Report 7768754-4 (Version None)
Quarter: 2011Q3

REPORT INFORMATION
  Report Type: 
  Country: None (occurrence: None)
  Receive Date: 20110922
  Receipt Date: 20110216
  Transmission Date: 20111222
  Serious: No
  Sender: FDA-Public Use
  Company Number: US-ASTRAZENECA-2011SE09116

PATIENT
  Age: 25 Year
  Sex: Male

DRUGS (5)
  1. VYVANSE [Concomitant]
  2. DEXTRASTAT [Concomitant]
  3. AMITRIPTYLINE HCL [Concomitant]
  4. LUNESTA [Concomitant]
  5. SEROQUEL XR [Suspect]
     Indication: BIPOLAR DISORDER
     Route: 048
     Dates: start: 20090101

REACTIONS (1)
  - NASOPHARYNGITIS [None]
